FAERS Safety Report 6144820-4 (Version None)
Quarter: 2009Q2

REPORT INFORMATION
  Report Type: 
  Country: None (occurrence: None)
  Receive Date: 20090406
  Receipt Date: 20090324
  Transmission Date: 20091009
  Serious: Yes (Other)
  Sender: FDA-Public Use
  Company Number: US-ELI_LILLY_AND_COMPANY-US200903006457

PATIENT
  Age: 85 Year
  Sex: Female

DRUGS (5)
  1. CYMBALTA [Suspect]
     Indication: MAJOR DEPRESSION
     Dosage: 20 MG, DAILY (1/D)
     Dates: start: 20090130, end: 20090202
  2. CYMBALTA [Suspect]
     Dosage: 40 MG, UNK
     Dates: start: 20090203, end: 20090206
  3. CYMBALTA [Suspect]
     Dosage: 60 MG, UNK
     Dates: start: 20090207, end: 20090220
  4. DEPAKOTE [Concomitant]
  5. RISPERIDONE [Concomitant]

REACTIONS (2)
  - BREAST CANCER [None]
  - WEIGHT DECREASED [None]
